FAERS Safety Report 5208911-4 (Version None)
Quarter: 2007Q1

REPORT INFORMATION
  Report Type: 
  Country: None (occurrence: None)
  Receive Date: 20070116
  Receipt Date: 20070109
  Transmission Date: 20070707
  Serious: Yes (Other)
  Sender: FDA-Public Use
  Company Number: GR-BRISTOL-MYERS SQUIBB COMPANY-13556279

PATIENT
  Age: 39 Year
  Sex: Female
  Weight: 58 kg

DRUGS (5)
  1. REYATAZ [Suspect]
     Indication: HIV INFECTION
     Dosage: INTERRUPTED FROM 27-JUL-2005 TO 20-AUG-2005
     Route: 048
     Dates: start: 20050526, end: 20050905
  2. ZIAGEN [Concomitant]
     Route: 048
     Dates: start: 20050526, end: 20050727
  3. VIDEX [Concomitant]
     Route: 048
     Dates: start: 20050820, end: 20050905
  4. ZERIT [Concomitant]
     Dosage: INTERRUPTED FROM 27-JUL-2005 TO 20-AUG-2005
     Dates: start: 20050526, end: 20050905
  5. EPIVIR [Concomitant]
     Dosage: INTERRUPTED FROM 27-JUL-2005 TO 20-AUG-2005
     Dates: start: 20050526, end: 20050905

REACTIONS (2)
  - MENORRHAGIA [None]
  - VAGINAL HAEMORRHAGE [None]
